FAERS Safety Report 12179041 (Version 1)
Quarter: 2016Q1

REPORT INFORMATION
  Report Type: Spontaneous
  Country: FR (occurrence: FR)
  Receive Date: 20160315
  Receipt Date: 20160315
  Transmission Date: 20160526
  Serious: Yes (Other)
  Sender: FDA-Public Use
  Company Number: PHHY2016FR033542

PATIENT
  Age: 60 Year
  Sex: Male

DRUGS (1)
  1. SEEBRI BREEZHALER [Suspect]
     Active Substance: GLYCOPYRROLATE
     Indication: BRONCHITIS CHRONIC
     Dosage: 1 DF, QD
     Route: 055

REACTIONS (2)
  - Haemoptysis [Recovered/Resolved]
  - Cough [Recovered/Resolved]
